FAERS Safety Report 16502760 (Version 9)
Quarter: 2021Q4

REPORT INFORMATION
  Report Type: Report from Study
  Country: JP (occurrence: JP)
  Receive Date: 20190701
  Receipt Date: 20211206
  Transmission Date: 20220303
  Serious: Yes (Death, Hospitalization, Disabling, Other)
  Sender: FDA-Public Use
  Company Number: JP-BRISTOL-MYERS SQUIBB COMPANY-BMS-2019-062022

PATIENT
  Age: 76 Year
  Sex: Male
  Weight: 81.9 kg

DRUGS (3)
  1. NIVOLUMAB [Suspect]
     Active Substance: NIVOLUMAB
     Indication: Malignant melanoma
     Dosage: 80 MILLIGRAM, Q3WK
     Route: 041
     Dates: start: 20190419, end: 20190531
  2. NIVOLUMAB [Suspect]
     Active Substance: NIVOLUMAB
     Dosage: 230 MILLIGRAM
     Route: 041
     Dates: start: 20190719, end: 20201023
  3. IPILIMUMAB [Suspect]
     Active Substance: IPILIMUMAB
     Indication: Malignant melanoma
     Dosage: 3 MILLIGRAM/KILOGRAM, Q3WK
     Route: 041
     Dates: start: 20190419, end: 20190531

REACTIONS (3)
  - Malignant neoplasm progression [Fatal]
  - Type 1 diabetes mellitus [Not Recovered/Not Resolved]
  - Diabetic ketosis [Recovering/Resolving]

NARRATIVE: CASE EVENT DATE: 20190620
